FAERS Safety Report 4619061-X (Version None)
Quarter: 2005Q2

REPORT INFORMATION
  Report Type: 
  Country: None (occurrence: None)
  Receive Date: 20050321
  Receipt Date: 20041118
  Transmission Date: 20051028
  Serious: Yes (Other)
  Sender: FDA-Public Use
  Company Number: 2004-11-1229

PATIENT
  Age: 51 Year
  Sex: Male

DRUGS (2)
  1. PEG-INTRON [Suspect]
     Dosage: 120 MCG
     Dates: start: 20040101
  2. REBETOL [Suspect]
     Dosage: 1000 MG QD
     Dates: start: 20040101

REACTIONS (4)
  - ANAEMIA [None]
  - DEPRESSION [None]
  - SUICIDAL IDEATION [None]
  - WEIGHT DECREASED [None]
